FAERS Safety Report 9961421 (Version 2)
Quarter: 2014Q1

REPORT INFORMATION
  Report Type: Report from Study
  Country: US (occurrence: US)
  Receive Date: 20140305
  Receipt Date: 20140307
  Transmission Date: 20141002
  Serious: Yes (Death)
  Sender: FDA-Public Use
  Company Number: US-ASTELLAS-2014US002150

PATIENT
  Sex: Female

DRUGS (8)
  1. ERLOTINIB TABLET [Suspect]
     Indication: LUNG NEOPLASM MALIGNANT
     Dosage: 100 MG, UID/QD
     Route: 048
  2. ERLOTINIB TABLET [Suspect]
     Indication: NON-SMALL CELL LUNG CANCER
  3. MORPHINE                           /00036302/ [Concomitant]
     Indication: PAIN
     Dosage: 2 MG, PRN
     Route: 048
     Dates: start: 20140127, end: 20140218
  4. NYSTATIN [Concomitant]
     Indication: PRODUCT USED FOR UNKNOWN INDICATION
     Dosage: 1 UNIT NOT REPORTED, 3 IN 1 DAY
     Route: 061
     Dates: start: 20130127, end: 20140218
  5. DECADRON                           /00016001/ [Concomitant]
     Indication: INFLAMMATION
     Dosage: 4 MG, UNKNOWN/D
     Route: 065
     Dates: start: 20130127, end: 20140218
  6. KEPRA [Concomitant]
     Indication: CONVULSION
     Dosage: 500 MG, UNKNOWN/D
     Route: 054
  7. OLANZAPINE [Concomitant]
     Indication: AGITATION
     Dosage: 5 MG, UNKNOWN/D
     Route: 065
     Dates: start: 20140127, end: 20140218
  8. TRAMICOLAE [Concomitant]
     Indication: PRODUCT USED FOR UNKNOWN INDICATION
     Dosage: UNK
     Route: 065

REACTIONS (2)
  - Incorrect dose administered [Unknown]
  - Malignant neoplasm progression [Fatal]
